FAERS Safety Report 15756731 (Version 2)
Quarter: 2019Q1

REPORT INFORMATION
  Report Type: Spontaneous
  Country: US (occurrence: US)
  Receive Date: 20181224
  Receipt Date: 20190201
  Transmission Date: 20190417
  Serious: No
  Sender: FDA-Public Use
  Company Number: PHEH2018US052978

PATIENT
  Sex: Female

DRUGS (2)
  1. TRIFLURIDINE. [Suspect]
     Active Substance: TRIFLURIDINE
     Indication: EYE INFECTION
     Dosage: 1 DF, TID 9 (DROP)
     Route: 047
     Dates: start: 20181205
  2. TRIFLURIDINE. [Suspect]
     Active Substance: TRIFLURIDINE
     Dosage: 1 DF, TID 7 (DROP)
     Route: 047
     Dates: start: 20181205

REACTIONS (7)
  - Reading disorder [Unknown]
  - Frustration tolerance decreased [Unknown]
  - Neck pain [Unknown]
  - Product administration error [Unknown]
  - Product container issue [Unknown]
  - Eye ulcer [Unknown]
  - Product packaging quantity issue [Unknown]
